FAERS Safety Report 4865963-9 (Version None)
Quarter: 2005Q4

REPORT INFORMATION
  Report Type: 
  Country: None (occurrence: None)
  Receive Date: 20051226
  Receipt Date: 20050818
  Transmission Date: 20060501
  Serious: Yes (Hospitalization)
  Sender: FDA-Public Use
  Company Number: 200517398GDDC

PATIENT
  Age: 99 Year
  Weight: 111 kg

DRUGS (10)
  1. DOCETAXEL [Suspect]
     Indication: OESOPHAGEAL CARCINOMA
     Route: 042
     Dates: start: 20050810, end: 20050810
  2. CAPECITABINE [Suspect]
     Indication: OESOPHAGEAL CARCINOMA
     Dates: start: 20050810
  3. ZOLOFT [Concomitant]
     Route: 048
     Dates: start: 20000101
  4. LITHIUM [Concomitant]
     Route: 048
     Dates: start: 20000101
  5. ATORVASTATIN [Concomitant]
     Route: 048
     Dates: start: 20020101
  6. RAMIPRIL [Concomitant]
     Route: 048
     Dates: start: 20020101, end: 20020824
  7. AMPHOTERICIN B [Concomitant]
     Indication: CANDIDIASIS
     Dosage: DOSE: I
     Route: 048
     Dates: start: 20050810, end: 20050826
  8. SOMAC [Concomitant]
     Route: 048
     Dates: start: 20050824
  9. FLUCONAZOLE [Concomitant]
     Indication: CANDIDIASIS
     Route: 048
     Dates: start: 20050820, end: 20050828
  10. MAXOLON [Concomitant]
     Dosage: DOSE: 10 MG FOR 4 DOSES
     Route: 048
     Dates: start: 20050817, end: 20050825

REACTIONS (5)
  - BLOOD ALBUMIN DECREASED [None]
  - BLOOD ALKALINE PHOSPHATASE INCREASED [None]
  - BLOOD BILIRUBIN INCREASED [None]
  - HYPERGLYCAEMIA [None]
  - PYREXIA [None]
